FAERS Safety Report 6343259-6 (Version None)
Quarter: 2009Q3

REPORT INFORMATION
  Report Type: 
  Country: None (occurrence: None)
  Receive Date: 20090908
  Receipt Date: 20090827
  Transmission Date: 20100115
  Serious: Yes (Other)
  Sender: FDA-Public Use
  Company Number: PHHY2009FR36643

PATIENT
  Sex: Male

DRUGS (3)
  1. LEPONEX [Suspect]
     Indication: BIPOLAR DISORDER
     Dosage: 200 MG DAILY
     Route: 048
     Dates: end: 20090720
  2. DEPAKOTE [Concomitant]
     Indication: BIPOLAR DISORDER
  3. VENTOLIN [Concomitant]

REACTIONS (4)
  - BLOOD CREATINE PHOSPHOKINASE INCREASED [None]
  - MYALGIA [None]
  - MYOGLOBINURIA [None]
  - PAIN IN EXTREMITY [None]
